FAERS Safety Report 17302664 (Version 1)
Quarter: 2020Q1

REPORT INFORMATION
  Report Type: Spontaneous
  Country: IT (occurrence: IT)
  Receive Date: 20200122
  Receipt Date: 20200122
  Transmission Date: 20200409
  Serious: Yes (Death, Other)
  Sender: FDA-Public Use
  Company Number: IT-AMGEN-ITASP2020007862

PATIENT

DRUGS (2)
  1. PANITUMUMAB [Suspect]
     Active Substance: PANITUMUMAB
     Indication: RECTAL CANCER
     Dosage: 6 MILLIGRAM/KILOGRAM
     Route: 065
  2. IRINOTECAN [Concomitant]
     Active Substance: IRINOTECAN
     Indication: RECTAL CANCER
     Dosage: UNK (120/160 MG/M2)

REACTIONS (12)
  - Diarrhoea [Unknown]
  - Nausea [Unknown]
  - Vomiting [Unknown]
  - Death [Fatal]
  - Pelvic pain [Unknown]
  - General physical health deterioration [Unknown]
  - Skin toxicity [Unknown]
  - Mucosal inflammation [Unknown]
  - Bone marrow failure [Unknown]
  - Rectal cancer recurrent [Unknown]
  - Device related infection [Unknown]
  - Fatigue [Unknown]
